FAERS Safety Report 9781720 (Version 1)
Quarter: 2013Q4

REPORT INFORMATION
  Report Type: Spontaneous
  Country: IT (occurrence: IT)
  Receive Date: 20131224
  Receipt Date: 20131224
  Transmission Date: 20140711
  Serious: Yes (Other)
  Sender: FDA-Public Use
  Company Number: IT-WATSON-2013-23217

PATIENT
  Age: 83 Year
  Sex: Female

DRUGS (1)
  1. LEVOFLOXACINA ACTAVIS [Suspect]
     Indication: BRONCHITIS
     Dosage: 1 DF, DAILY
     Route: 048
     Dates: start: 20121222, end: 20121223

REACTIONS (3)
  - Vertigo [Recovering/Resolving]
  - Vomiting [Recovering/Resolving]
  - Nausea [Recovering/Resolving]
